FAERS Safety Report 4809730-0 (Version None)
Quarter: 2005Q4

REPORT INFORMATION
  Report Type: 
  Country: None (occurrence: None)
  Receive Date: 20051024
  Receipt Date: 20051007
  Transmission Date: 20060501
  Serious: Yes (Other)
  Sender: FDA-Public Use
  Company Number: 12615

PATIENT
  Age: 36 Year
  Sex: Female

DRUGS (2)
  1. METHOTREXATE [Suspect]
     Indication: BONE SARCOMA
     Dosage: 24 G OTH
  2. LEUCOVORIN [Concomitant]

REACTIONS (3)
  - BRADYCARDIA [None]
  - CHEST PAIN [None]
  - VENTRICULAR TACHYCARDIA [None]
